FAERS Safety Report 7164494-3 (Version None)
Quarter: 2010Q4

REPORT INFORMATION
  Report Type: 
  Country: None (occurrence: None)
  Receive Date: 20101215
  Receipt Date: 20101209
  Transmission Date: 20110411
  Serious: Yes (Hospitalization, Other)
  Sender: FDA-Public Use
  Company Number: AT-ABBOTT-10P-009-0685788-00

PATIENT
  Age: 79 Year
  Sex: Female

DRUGS (2)
  1. KLACID [Suspect]
     Indication: INFECTION
  2. QUETIAPINE FUMARATE [Interacting]
     Indication: PRODUCT USED FOR UNKNOWN INDICATION

REACTIONS (3)
  - ABASIA [None]
  - DRUG INTERACTION [None]
  - MENTAL DISORDER [None]
